FAERS Safety Report 8225511-2 (Version None)
Quarter: 2012Q1

REPORT INFORMATION
  Report Type: 
  Country: None (occurrence: None)
  Receive Date: 20120321
  Receipt Date: 20120314
  Transmission Date: 20120608
  Serious: Yes (Hospitalization)
  Sender: FDA-Public Use
  Company Number: US-US-EMD SERONO, INC.-7115902

PATIENT
  Sex: Female

DRUGS (4)
  1. REBIF [Suspect]
     Route: 058
     Dates: start: 20120223
  2. REBIF [Suspect]
     Indication: MULTIPLE SCLEROSIS
     Route: 058
     Dates: start: 20120124
  3. REBIF [Suspect]
     Route: 058
  4. MOTRIN [Concomitant]
     Indication: PREMEDICATION

REACTIONS (6)
  - EYE DISORDER [None]
  - NEUROFIBROMA [None]
  - TONGUE PARALYSIS [None]
  - DYSPHAGIA [None]
  - JOINT LOCK [None]
  - PALPITATIONS [None]
